FAERS Safety Report 5443042-X (Version None)
Quarter: 2007Q3

REPORT INFORMATION
  Report Type: 
  Country: None (occurrence: None)
  Receive Date: 20070905
  Receipt Date: 20070904
  Transmission Date: 20080115
  Serious: Yes (Hospitalization)
  Sender: FDA-Public Use
  Company Number: US-BRISTOL-MYERS SQUIBB COMPANY-13739065

PATIENT
  Age: 54 Year
  Sex: Female

DRUGS (1)
  1. TEQUIN [Suspect]
     Dates: start: 20060215

REACTIONS (1)
  - HYPOGLYCAEMIA [None]
